FAERS Safety Report 6103618-3 (Version None)
Quarter: 2009Q1

REPORT INFORMATION
  Report Type: 
  Country: None (occurrence: None)
  Receive Date: 20090305
  Receipt Date: 20090224
  Transmission Date: 20090719
  Serious: Yes (Hospitalization)
  Sender: FDA-Public Use
  Company Number: DE-ABBOTT-09P-062-0499878-00

PATIENT
  Sex: Female
  Weight: 72 kg

DRUGS (3)
  1. HUMIRA [Suspect]
     Indication: CROHN'S DISEASE
     Route: 058
     Dates: start: 20080311, end: 20090114
  2. MUTAFLOR [Concomitant]
     Indication: CROHN'S DISEASE
  3. AVELOX [Concomitant]
     Indication: PNEUMONIA
     Dosage: OPD
     Route: 048
     Dates: start: 20090127, end: 20090205

REACTIONS (4)
  - CHILLS [None]
  - PLEURISY [None]
  - PNEUMONIA [None]
  - PYREXIA [None]
